FAERS Safety Report 6437014-6 (Version None)
Quarter: 2009Q4

REPORT INFORMATION
  Report Type: 
  Country: None (occurrence: None)
  Receive Date: 20091112
  Receipt Date: 20091102
  Transmission Date: 20100525
  Serious: Yes (Hospitalization)
  Sender: FDA-Public Use
  Company Number: GB-RANBAXY-2009RR-29022

PATIENT
  Age: 82 Year
  Sex: Female

DRUGS (7)
  1. IBUPROFEN [Suspect]
     Indication: PAIN
     Dosage: 400 MG, TID
     Route: 048
     Dates: end: 20091018
  2. ALENDRONATE SODIUM [Concomitant]
  3. CALCICHEW D3 [Concomitant]
  4. CETIRIZINE [Concomitant]
  5. LETROZOLE [Concomitant]
  6. LEVOTHYROXINE SODIUM [Concomitant]
  7. PARACETAMOL [Concomitant]

REACTIONS (1)
  - GASTRITIS [None]
